FAERS Safety Report 8957268 (Version 1)
Quarter: 2012Q4

REPORT INFORMATION
  Report Type: 
  Country: US (occurrence: US)
  Receive Date: 20121210
  Receipt Date: 20121210
  Transmission Date: 20130627
  Serious: No
  Sender: FDA-Public Use
  Company Number: US-ASTELLAS-2012US010400

PATIENT
  Age: 49 Year
  Sex: Male

DRUGS (3)
  1. XTANDI [Suspect]
     Indication: PROSTATE CANCER
     Dosage: 160 mg, UID/QD
     Route: 048
  2. UNSPECIFIED MEDICATIONS [Suspect]
     Indication: PROSTATE CANCER
     Dosage: UNK
     Route: 065
  3. OXYCONTIN [Concomitant]
     Indication: PAIN
     Dosage: UNK
     Route: 065

REACTIONS (2)
  - Nausea [Unknown]
  - Dysgeusia [Unknown]
